FAERS Safety Report 5189427-0 (Version None)
Quarter: 2006Q4

REPORT INFORMATION
  Report Type: 
  Country: None (occurrence: None)
  Receive Date: 20061215
  Receipt Date: 20061207
  Transmission Date: 20070319
  Serious: Yes (Other)
  Sender: FDA-Public Use
  Company Number: 2006150613

PATIENT
  Age: 64 Year
  Sex: Male
  Weight: 133.8111 kg

DRUGS (1)
  1. LIPITOR [Suspect]
     Indication: BLOOD CHOLESTEROL INCREASED
     Dosage: 20MG (20MG, 1 IN1D)

REACTIONS (2)
  - ELECTROCARDIOGRAM ABNORMAL [None]
  - HEART VALVE INSUFFICIENCY [None]
